FAERS Safety Report 4931434-4 (Version None)
Quarter: 2006Q1

REPORT INFORMATION
  Report Type: 
  Country: None (occurrence: None)
  Receive Date: 20060228
  Receipt Date: 20060215
  Transmission Date: 20060701
  Serious: Yes (Other)
  Sender: FDA-Public Use
  Company Number: 2006022467

PATIENT
  Sex: Female
  Weight: 56.6996 kg

DRUGS (3)
  1. CELEBREX [Suspect]
     Indication: ARTHRALGIA
     Dates: start: 20050801
  2. BEXTRA [Suspect]
     Indication: SCIATICA
     Dosage: ORAL
     Route: 048
  3. DIURETICS (DIURECTICS) [Concomitant]

REACTIONS (11)
  - BODY HEIGHT DECREASED [None]
  - CHONDROPATHY [None]
  - DRUG EFFECT DECREASED [None]
  - HYPERSENSITIVITY [None]
  - KNEE ARTHROPLASTY [None]
  - POOR QUALITY DRUG ADMINISTERED [None]
  - PROCEDURAL PAIN [None]
  - ROTATOR CUFF SYNDROME [None]
  - SHOULDER PAIN [None]
  - TENDONITIS [None]
  - THERAPY NON-RESPONDER [None]
